FAERS Safety Report 4485061-6 (Version None)
Quarter: 2004Q4

REPORT INFORMATION
  Report Type: 
  Country: None (occurrence: None)
  Receive Date: 20041026
  Receipt Date: 20040714
  Transmission Date: 20050328
  Serious: No
  Sender: FDA-Public Use
  Company Number: US-BRISTOL-MYERS SQUIBB COMPANY-12641213

PATIENT
  Age: 54 Year
  Sex: Female
  Weight: 114 kg

DRUGS (4)
  1. METAGLIP [Suspect]
     Indication: DIABETES MELLITUS
     Dosage: DOSE = 5MG/500MG 5X/DAY
     Route: 048
     Dates: start: 20040705
  2. INDAPAMIDE [Concomitant]
  3. ZOLOFT [Concomitant]
  4. CELEBREX [Concomitant]

REACTIONS (4)
  - BLOOD GLUCOSE INCREASED [None]
  - DIARRHOEA [None]
  - HYPERCHLORHYDRIA [None]
  - NAUSEA [None]
